FAERS Safety Report 9367819 (Version 1)
Quarter: 2013Q2

REPORT INFORMATION
  Report Type: Spontaneous
  Country: US (occurrence: US)
  Receive Date: 20130625
  Receipt Date: 20130625
  Transmission Date: 20140414
  Serious: No
  Sender: FDA-Public Use
  Company Number: US-ASTELLAS-2012US009928

PATIENT
  Sex: Female

DRUGS (2)
  1. VESICARE [Suspect]
     Indication: URINARY INCONTINENCE
     Dosage: 5 MG, UID/QD
     Route: 048
     Dates: start: 20100927, end: 20101002
  2. TIKOSYN [Concomitant]
     Indication: ATRIAL FIBRILLATION
     Dosage: 0.5 MG, BID
     Route: 048
     Dates: start: 20060919

REACTIONS (2)
  - Hypoaesthesia [Not Recovered/Not Resolved]
  - Paraesthesia [Not Recovered/Not Resolved]
